FAERS Safety Report 16467965 (Version 1)
Quarter: 2019Q2

REPORT INFORMATION
  Report Type: Spontaneous
  Country: US (occurrence: US)
  Receive Date: 20190513
  Receipt Date: 20190513
  Transmission Date: 20190711
  Serious: No
  Sender: FDA-Public Use
  Company Number: None

PATIENT
  Age: 78 Year
  Sex: Male

DRUGS (1)
  1. DOCETAXEL INJ 20MG/ML [Suspect]
     Active Substance: DOCETAXEL
     Indication: BLADDER CANCER
     Dosage: OTHER?INTRAVENOUS (NOT OTHERWISE SPECIFIED)
     Route: 042
     Dates: start: 201904

REACTIONS (1)
  - Product packaging quantity issue [None]

NARRATIVE: CASE EVENT DATE: 20190313
